FAERS Safety Report 14032256 (Version 1)
Quarter: 2017Q4

REPORT INFORMATION
  Report Type: Spontaneous
  Country: CL (occurrence: CL)
  Receive Date: 20171002
  Receipt Date: 20171002
  Transmission Date: 20180321
  Serious: Yes (Hospitalization, Other)
  Sender: FDA-Public Use
  Company Number: CL-PFIZER INC-2017421363

PATIENT
  Age: 15 Year

DRUGS (1)
  1. AZULFIDINE [Suspect]
     Active Substance: SULFASALAZINE
     Indication: JUVENILE IDIOPATHIC ARTHRITIS
     Dosage: 1500 MG, UNK

REACTIONS (5)
  - Hepatomegaly [Unknown]
  - Respiratory failure [Unknown]
  - Transaminases increased [Unknown]
  - Rash [Unknown]
  - Lymphadenopathy [Unknown]
